FAERS Safety Report 6769939-6 (Version None)
Quarter: 2010Q2

REPORT INFORMATION
  Report Type: 
  Country: None (occurrence: None)
  Receive Date: 20100615
  Receipt Date: 20100608
  Transmission Date: 20101027
  Serious: Yes (Hospitalization)
  Sender: FDA-Public Use
  Company Number: A0864654A

PATIENT
  Age: 19 Year
  Sex: Female
  Weight: 74.3 kg

DRUGS (6)
  1. NELARABINE [Suspect]
  2. VINCRISTINE [Suspect]
     Dosage: 1.5MGM2 CYCLIC
     Route: 042
     Dates: start: 20071005
  3. DEXAMETHASONE [Suspect]
     Dosage: 3MGM2 CYCLIC
     Route: 048
     Dates: start: 20071005
  4. MERCAPTOPURINE [Suspect]
     Dosage: 75MGM2 PER DAY
     Route: 048
     Dates: start: 20071005
  5. METHOTREXATE [Suspect]
     Dosage: 20MGM2 CYCLIC
     Route: 048
  6. METHOTREXATE [Suspect]
     Route: 037
     Dates: start: 20071005

REACTIONS (6)
  - ACIDOSIS [None]
  - HYPOTENSION [None]
  - JAUNDICE [None]
  - PLEURAL EFFUSION [None]
  - PYREXIA [None]
  - SEPSIS [None]
